FAERS Safety Report 11160283 (Version 2)
Quarter: 2016Q1

REPORT INFORMATION
  Report Type: Report from Study
  Country: JP (occurrence: JP)
  Receive Date: 20150603
  Receipt Date: 20160225
  Transmission Date: 20160525
  Serious: Yes (Other)
  Sender: FDA-Public Use
  Company Number: JP-ROCHE-1586476

PATIENT

DRUGS (6)
  1. TEGAFUR/URACIL [Suspect]
     Active Substance: TEGAFUR\URACIL
     Indication: COLORECTAL CANCER METASTATIC
  2. TEGAFUR/URACIL [Suspect]
     Active Substance: TEGAFUR\URACIL
     Indication: COLORECTAL CANCER
     Dosage: 300-600 MG (BASED ON BODY SURFACE AREA OF PATIENT) DAILY IN 2 DIVIDED DOSES ON DAYS 1 TO 21 OF A 4-W
     Route: 048
  3. BEVACIZUMAB [Suspect]
     Active Substance: BEVACIZUMAB
     Indication: COLORECTAL CANCER METASTATIC
  4. BEVACIZUMAB [Suspect]
     Active Substance: BEVACIZUMAB
     Indication: COLORECTAL CANCER
     Dosage: OVER 30-90 MIN ON DAYS 1 AND 15 OF A 4-WEEK CYCLE
     Route: 042
  5. LEUCOVORIN. [Suspect]
     Active Substance: LEUCOVORIN
     Indication: COLORECTAL CANCER
     Route: 048
  6. LEUCOVORIN. [Suspect]
     Active Substance: LEUCOVORIN
     Indication: COLORECTAL CANCER METASTATIC

REACTIONS (10)
  - Neutropenia [Unknown]
  - Decreased appetite [Unknown]
  - Proteinuria [Unknown]
  - Fatigue [Unknown]
  - Nausea [Unknown]
  - Stomatitis [Unknown]
  - Hypertension [Unknown]
  - Large intestinal ulcer [Unknown]
  - Fracture [Unknown]
  - Diarrhoea [Unknown]
